FAERS Safety Report 8462374 (Version 3)
Quarter: 2012Q4

REPORT INFORMATION
  Report Type: 
  Country: US (occurrence: US)
  Receive Date: 20120316
  Receipt Date: 20121005
  Transmission Date: 20130627
  Serious: No
  Sender: FDA-Public Use
  Company Number: US-PFIZER INC-2012066764

PATIENT
  Age: 51 Year
  Sex: Female
  Weight: 65.76 kg

DRUGS (2)
  1. ALAVERT [Suspect]
     Indication: SINUS CONGESTION
     Dosage: UNK
     Route: 048
     Dates: start: 20120311, end: 20120311
  2. ALAVERT [Suspect]
     Indication: HYPERSENSITIVITY

REACTIONS (4)
  - Drug ineffective [Unknown]
  - Eye pruritus [Recovering/Resolving]
  - Nasal congestion [Recovering/Resolving]
  - Somnolence [Recovering/Resolving]
